FAERS Safety Report 6526611-5 (Version None)
Quarter: 2010Q1

REPORT INFORMATION
  Report Type: 
  Country: None (occurrence: None)
  Receive Date: 20100105
  Receipt Date: 20091221
  Transmission Date: 20100710
  Serious: No
  Sender: FDA-Public Use
  Company Number: US-B.I. PHARMACEUTICALS,INC./RIDGEFIELD-2009-BP-14711BP

PATIENT
  Sex: Male

DRUGS (19)
  1. SPIRIVA [Suspect]
     Indication: EMPHYSEMA
     Dosage: 18 MCG
     Route: 055
     Dates: start: 20091109, end: 20091209
  2. SPIRIVA [Suspect]
     Indication: CHRONIC OBSTRUCTIVE PULMONARY DISEASE
  3. UROXATRAL [Suspect]
     Indication: DYSURIA
     Route: 048
     Dates: start: 20090101
  4. DUONEB [Concomitant]
     Indication: EMPHYSEMA
     Route: 055
  5. IMDUR [Concomitant]
     Indication: ANGINA PECTORIS
     Route: 048
  6. NORVASC [Concomitant]
     Indication: HYPERTENSION
     Dosage: 10 MG
     Route: 048
  7. LISINOPRIL [Concomitant]
     Indication: HYPERTENSION
     Dosage: 10 MG
     Route: 048
  8. ZOCOR [Concomitant]
     Indication: BLOOD CHOLESTEROL INCREASED
     Route: 048
  9. PLAVIX [Concomitant]
     Indication: ANTIPLATELET THERAPY
     Route: 048
  10. PLAVIX [Concomitant]
     Indication: ANGINA PECTORIS
  11. RHYTHMOL [Concomitant]
     Indication: ARRHYTHMIA
     Dosage: 450 MG
  12. O2 [Concomitant]
     Indication: EMPHYSEMA
     Route: 013
  13. NITROSTAT [Concomitant]
     Indication: ANGINA PECTORIS
     Route: 060
  14. FOLIC ACID [Concomitant]
     Indication: CARDIOVASCULAR EVENT PROPHYLAXIS
     Dosage: 1 MG
     Route: 048
  15. ASPIRIN [Concomitant]
     Indication: CARDIOVASCULAR EVENT PROPHYLAXIS
     Dosage: 81 MG
     Route: 048
  16. RESTORIL [Concomitant]
     Indication: DEPRESSION
     Route: 048
  17. ATIVAN [Concomitant]
     Indication: ANXIETY
     Route: 048
  18. PRILOSEC [Concomitant]
     Indication: DYSPEPSIA
     Dosage: 20 MG
     Route: 048
  19. MIRALAX [Concomitant]
     Indication: CONSTIPATION
     Route: 048

REACTIONS (6)
  - BLADDER DISORDER [None]
  - DRY SKIN [None]
  - PRURITUS [None]
  - PRURITUS GENERALISED [None]
  - SKIN CHAPPED [None]
  - SKIN DISORDER [None]
